FAERS Safety Report 9345682 (Version 2)
Quarter: 2013Q3

REPORT INFORMATION
  Report Type: Spontaneous
  Country: US (occurrence: US)
  Receive Date: 20130613
  Receipt Date: 20130726
  Transmission Date: 20140515
  Serious: Yes (Hospitalization, Other)
  Sender: FDA-Public Use
  Company Number: US-MERCK-1306USA004669

PATIENT
  Age: 68 Year
  Sex: Male

DRUGS (7)
  1. JANUVIA [Suspect]
     Indication: TYPE 2 DIABETES MELLITUS
     Dosage: 100 MG, QD
     Route: 048
     Dates: start: 201006, end: 2013
  2. JANUVIA [Suspect]
     Dosage: 100 MG
     Route: 048
     Dates: start: 2013
  3. GLIPIZIDE [Concomitant]
     Dosage: 20 MG, BID
  4. GLIPIZIDE [Concomitant]
     Dosage: 10 MG, BID
     Dates: end: 2013
  5. GLIPIZIDE [Concomitant]
     Dosage: SPLIT TABLET TO DELIVER 5 MG TAKEN TWICE DAILY
     Dates: start: 2013
  6. METFORMIN [Concomitant]
     Dosage: 1000 MG, BID
  7. XARELTO [Concomitant]

REACTIONS (4)
  - Cerebrovascular accident [Unknown]
  - Atrial fibrillation [Unknown]
  - Glycosylated haemoglobin decreased [Unknown]
  - Blood glucose decreased [Not Recovered/Not Resolved]
